FAERS Safety Report 7130414-0 (Version None)
Quarter: 2010Q4

REPORT INFORMATION
  Report Type: 
  Country: None (occurrence: None)
  Receive Date: 20101201
  Receipt Date: 20101122
  Transmission Date: 20110411
  Serious: No
  Sender: FDA-Public Use
  Company Number: US-ASTRAZENECA-2010SE45631

PATIENT
  Age: 28028 Day
  Sex: Female

DRUGS (13)
  1. SEROQUEL [Suspect]
     Indication: DEPRESSION
     Route: 048
     Dates: start: 20100920, end: 20100920
  2. SEROQUEL [Suspect]
     Indication: BIPOLAR DISORDER
     Route: 048
     Dates: start: 20100920, end: 20100920
  3. SEROQUEL [Suspect]
     Indication: ANXIETY
     Route: 048
     Dates: start: 20100920, end: 20100920
  4. SEROQUEL [Suspect]
     Indication: INSOMNIA
     Route: 048
     Dates: start: 20100920, end: 20100920
  5. LIPITOR [Concomitant]
  6. AMITRIPTYLINE [Concomitant]
  7. VIT B12 [Concomitant]
  8. ASPIRIN [Concomitant]
  9. LOVAZA [Concomitant]
  10. FLAX SEED [Concomitant]
  11. GINKO BALOBA [Concomitant]
  12. FOLIC ACID [Concomitant]
  13. TRAZODONE [Concomitant]
     Dosage: 1-2 TABS HS

REACTIONS (3)
  - OESOPHAGEAL STENOSIS [None]
  - PANIC ATTACK [None]
  - THROAT TIGHTNESS [None]
